FAERS Safety Report 16173944 (Version 1)
Quarter: 2019Q2

REPORT INFORMATION
  Report Type: Spontaneous
  Country: US (occurrence: US)
  Receive Date: 20190409
  Receipt Date: 20190409
  Transmission Date: 20190711
  Serious: No
  Sender: FDA-Public Use
  Company Number: US-BAYER-2019-071038

PATIENT
  Age: 56 Year
  Sex: Female
  Weight: 48 kg

DRUGS (9)
  1. CLARITIN [Suspect]
     Active Substance: LORATADINE
     Indication: SNEEZING
  2. CLARITIN [Suspect]
     Active Substance: LORATADINE
     Indication: HYPERSENSITIVITY
     Dosage: 1 DF, QD
     Route: 048
     Dates: start: 20190407, end: 20190408
  3. LISINOPRIL. [Concomitant]
     Active Substance: LISINOPRIL
  4. CLARITIN [Suspect]
     Active Substance: LORATADINE
     Indication: THROAT IRRITATION
  5. CLARITIN [Suspect]
     Active Substance: LORATADINE
     Indication: RHINORRHOEA
  6. CLARITIN [Suspect]
     Active Substance: LORATADINE
     Indication: HEADACHE
  7. CLARITIN [Suspect]
     Active Substance: LORATADINE
     Indication: COUGH
  8. CLARITIN [Suspect]
     Active Substance: LORATADINE
     Indication: NASOPHARYNGITIS
  9. CLARITIN [Suspect]
     Active Substance: LORATADINE
     Indication: NASAL PRURITUS

REACTIONS (2)
  - Drug ineffective [Unknown]
  - Extra dose administered [Unknown]
